FAERS Safety Report 4598825-5 (Version None)
Quarter: 2005Q1

REPORT INFORMATION
  Report Type: 
  Country: None (occurrence: None)
  Receive Date: 20050301
  Receipt Date: 20050201
  Transmission Date: 20050727
  Serious: Yes (Hospitalization)
  Sender: FDA-Public Use
  Company Number: 2005025710

PATIENT
  Sex: Male

DRUGS (6)
  1. CELEBREX [Suspect]
     Indication: ARTHRALGIA
     Dates: start: 20010101
  2. CELEBREX [Suspect]
     Indication: BACK PAIN
     Dates: start: 20010101
  3. MEPERIDINE HYDROCHLORIDE [Concomitant]
  4. VICODIN [Concomitant]
  5. PROPACET 100 [Concomitant]
  6. DIAZEPAM [Concomitant]

REACTIONS (4)
  - CHEST PAIN [None]
  - HIP ARTHROPLASTY [None]
  - INSOMNIA [None]
  - PAIN IN EXTREMITY [None]
